FAERS Safety Report 4343574-1 (Version None)
Quarter: 2004Q2

REPORT INFORMATION
  Report Type: 
  Country: None (occurrence: None)
  Receive Date: 20040419
  Receipt Date: 20040406
  Transmission Date: 20050107
  Serious: Yes (Hospitalization, Other)
  Sender: FDA-Public Use
  Company Number: 2004010362

PATIENT
  Age: 28 Year
  Sex: Female

DRUGS (6)
  1. ZITHROMAX [Suspect]
     Indication: PHARYNGITIS
     Dosage: 500 MG (DAILY), ORAL
     Route: 048
     Dates: start: 20040202, end: 20040202
  2. CARBAMAZEPINE [Suspect]
     Indication: DYSTHYMIC DISORDER
     Dosage: 150 MG (BID), ORAL
     Route: 048
     Dates: start: 20040120, end: 20040202
  3. FLUNITRAZEPAM (FLUNITRAZEPAM) [Concomitant]
  4. BROMAZEPAM (BROMAZEPAM) [Concomitant]
  5. MILNACIPRAM HYDROCHLORIDE (MILNACIPRAN HYDROCHLORIDE) [Concomitant]
  6. LOXOPROFEN SODIUM (LOXOPROFEN SODIUM) [Concomitant]

REACTIONS (2)
  - ERYTHEMA MULTIFORME [None]
  - STEVENS-JOHNSON SYNDROME [None]
